FAERS Safety Report 23882423 (Version 1)
Quarter: 2024Q2

REPORT INFORMATION
  Report Type: Spontaneous
  Country: US (occurrence: US)
  Receive Date: 20240522
  Receipt Date: 20240522
  Transmission Date: 20240716
  Serious: Yes (Hospitalization, Other)
  Sender: FDA-Public Use
  Company Number: US-NOVOPROD-1222760

PATIENT
  Sex: Female

DRUGS (1)
  1. NOVOLOG [Suspect]
     Active Substance: INSULIN ASPART
     Indication: Product used for unknown indication
     Dosage: 3-4 TIMES
     Route: 058
     Dates: start: 2020

REACTIONS (5)
  - Diabetic ketoacidosis [Unknown]
  - Diabetic ketoacidosis [Unknown]
  - Goitre [Unknown]
  - Dysphagia [Unknown]
  - Dyspnoea [Unknown]
